FAERS Safety Report 7895833-3 (Version None)
Quarter: 2011Q4

REPORT INFORMATION
  Report Type: 
  Country: None (occurrence: None)
  Receive Date: 20111106
  Receipt Date: 20110831
  Transmission Date: 20120403
  Serious: No
  Sender: FDA-Public Use
  Company Number: US-AMGEN-USASP2011044792

PATIENT
  Age: 32 Year
  Sex: Male
  Weight: 99.773 kg

DRUGS (3)
  1. IBUPROFEN (ADVIL) [Suspect]
     Dosage: 200 MG, UNK
  2. ENBREL [Suspect]
     Indication: PRODUCT USED FOR UNKNOWN INDICATION
     Dosage: 50 MG, UNK
  3. TYLENOL (CAPLET) [Suspect]
     Dosage: 325 MG, UNK

REACTIONS (2)
  - INFLUENZA LIKE ILLNESS [None]
  - INJECTION SITE HAEMORRHAGE [None]
